FAERS Safety Report 6336238-6 (Version None)
Quarter: 2009Q3

REPORT INFORMATION
  Report Type: 
  Country: None (occurrence: None)
  Receive Date: 20090901
  Receipt Date: 20090824
  Transmission Date: 20100115
  Serious: No
  Sender: FDA-Public Use
  Company Number: PHEH2009US08666

PATIENT
  Sex: Male
  Weight: 75.283 kg

DRUGS (2)
  1. TASIGNA [Suspect]
     Indication: CHRONIC MYELOID LEUKAEMIA
     Dosage: 200 MG, BID
     Route: 048
     Dates: start: 20090707
  2. CLONAZEPAM [Interacting]
     Indication: ANXIETY
     Dosage: 0.05 MG, UNK

REACTIONS (1)
  - POTENTIATING DRUG INTERACTION [None]
